FAERS Safety Report 21033630 (Version 1)
Quarter: 2022Q3

REPORT INFORMATION
  Report Type: Spontaneous
  Country: CN (occurrence: CN)
  Receive Date: 20220701
  Receipt Date: 20220701
  Transmission Date: 20221027
  Serious: Yes (Life-Threatening, Hospitalization, Other)
  Sender: FDA-Public Use
  Company Number: CN-009507513-2206CHN008413

PATIENT
  Age: 63 Year
  Sex: Male
  Weight: 60 kg

DRUGS (4)
  1. KEYTRUDA [Suspect]
     Active Substance: PEMBROLIZUMAB
     Indication: Lung neoplasm malignant
     Dosage: 200 MG, EVERY 21 DAYS (Q3W)
     Route: 041
     Dates: start: 20220503, end: 20220503
  2. KEYTRUDA [Suspect]
     Active Substance: PEMBROLIZUMAB
     Dosage: 200 MG, EVERY 21 DAYS (Q3W)
     Route: 041
     Dates: start: 20220530, end: 20220530
  3. GEMCITABINE [Concomitant]
     Active Substance: GEMCITABINE
     Indication: Lung neoplasm malignant
     Dosage: 1.7 G, D1 AND D7
     Route: 041
     Dates: start: 20220503
  4. GIMERACIL\OTERACIL\TEGAFUR [Concomitant]
     Active Substance: GIMERACIL\OTERACIL\TEGAFUR
     Indication: Lung neoplasm malignant
     Dosage: 50 MG, 2 TIMES A DAY (BID)
     Route: 048
     Dates: start: 20220503

REACTIONS (6)
  - Lymphangiosis carcinomatosa [Unknown]
  - Malignant neoplasm progression [Unknown]
  - Pneumonia [Not Recovered/Not Resolved]
  - Immune-mediated lung disease [Not Recovered/Not Resolved]
  - Emphysema [Unknown]
  - Product use issue [Unknown]

NARRATIVE: CASE EVENT DATE: 20220530
